FAERS Safety Report 19467768 (Version 1)
Quarter: 2021Q2

REPORT INFORMATION
  Report Type: Spontaneous
  Country: US (occurrence: US)
  Receive Date: 20210628
  Receipt Date: 20210628
  Transmission Date: 20210717
  Serious: No
  Sender: FDA-Public Use
  Company Number: US-AMGEN-USASP2021097439

PATIENT
  Sex: Female

DRUGS (13)
  1. FLUOXETINE [Concomitant]
     Active Substance: FLUOXETINE HYDROCHLORIDE
  2. AMPHETAMINE [Concomitant]
     Active Substance: AMPHETAMINE
  3. SAPHRIS [Concomitant]
     Active Substance: ASENAPINE MALEATE
  4. ASENAPINE. [Concomitant]
     Active Substance: ASENAPINE
  5. SAXENDA [Concomitant]
     Active Substance: LIRAGLUTIDE
  6. OTEZLA [Suspect]
     Active Substance: APREMILAST
     Indication: PRODUCT USED FOR UNKNOWN INDICATION
     Dosage: 30 MILLIGRAM, BID
     Route: 048
  7. LEVOCETRIZINE HYDROCHLORIDE [Concomitant]
  8. MELOXICAM. [Concomitant]
     Active Substance: MELOXICAM
  9. MONTELUKAST [Concomitant]
     Active Substance: MONTELUKAST SODIUM
  10. LEVONOR [ETHINYLESTRADIOL;LEVONORGESTREL] [Concomitant]
  11. LISINOPRIL. [Concomitant]
     Active Substance: LISINOPRIL
  12. DEXTROAMPHETAMINE [DEXAMFETAMINE] [Concomitant]
     Active Substance: DEXTROAMPHETAMINE
  13. EPINEPHRINE. [Concomitant]
     Active Substance: EPINEPHRINE

REACTIONS (3)
  - Discomfort [Not Recovered/Not Resolved]
  - Rash [Not Recovered/Not Resolved]
  - Condition aggravated [Not Recovered/Not Resolved]
